FAERS Safety Report 20081528 (Version 2)
Quarter: 2021Q4

REPORT INFORMATION
  Report Type: Spontaneous
  Country: US (occurrence: US)
  Receive Date: 20211117
  Receipt Date: 20211213
  Transmission Date: 20220303
  Serious: No
  Sender: FDA-Public Use
  Company Number: US-BAYER-2021A251033

PATIENT
  Age: 90 Year
  Sex: Female

DRUGS (3)
  1. MIRALAX [Suspect]
     Active Substance: POLYETHYLENE GLYCOL 3350
     Dosage: UNK
     Route: 048
     Dates: start: 2020
  2. MIRALAX [Suspect]
     Active Substance: POLYETHYLENE GLYCOL 3350
     Dosage: 1 TABLESPOON OF MIRALAX WITH 8 OUNCES OF WATER
     Route: 048
     Dates: start: 20211210
  3. PLANTAGO MAJOR LEAF [Suspect]
     Active Substance: PLANTAGO MAJOR LEAF

REACTIONS (2)
  - Incorrect dose administered [Unknown]
  - Constipation [Recovered/Resolved]

NARRATIVE: CASE EVENT DATE: 20211210
